FAERS Safety Report 7308779-6 (Version None)
Quarter: 2011Q1

REPORT INFORMATION
  Report Type: 
  Country: None (occurrence: None)
  Receive Date: 20110223
  Receipt Date: 20110215
  Transmission Date: 20110831
  Serious: Yes (Hospitalization)
  Sender: FDA-Public Use
  Company Number: CA-B.I. PHARMACEUTICALS,INC./RIDGEFIELD-2011-CN-00150CN

PATIENT
  Age: 89 Year
  Sex: Male

DRUGS (6)
  1. METOPROLOL [Concomitant]
  2. PRADAXA [Suspect]
     Indication: ATRIAL FIBRILLATION
     Dosage: 220 MG
     Dates: start: 20110129
  3. DIAMICRON [Concomitant]
     Indication: DIABETES MELLITUS
  4. LASIX [Concomitant]
  5. LISINOPRIL [Concomitant]
     Indication: HYPERTENSION
  6. DIGOXIN [Concomitant]

REACTIONS (1)
  - RENAL FAILURE ACUTE [None]
